FAERS Safety Report 4325163-8 (Version None)
Quarter: 2004Q1

REPORT INFORMATION
  Report Type: 
  Country: None (occurrence: None)
  Receive Date: 20040326
  Receipt Date: 20040307
  Transmission Date: 20041129
  Serious: Yes (Death, Hospitalization)
  Sender: FDA-Public Use
  Company Number: US-MERCK-0403USA00719

PATIENT
  Age: 77 Year
  Sex: Female

DRUGS (13)
  1. [THERAPY UNSPECIFIED] [Concomitant]
  2. AMITRIPTYLINE HYDROCHLORIDE [Concomitant]
  3. ASPIRIN [Concomitant]
  4. LIPITOR [Concomitant]
     Dates: end: 20011101
  5. LIPITOR [Concomitant]
     Dates: start: 20011101, end: 20031112
  6. LIPITOR [Concomitant]
     Dates: start: 20031101, end: 20040106
  7. OS-CAL [Concomitant]
  8. ZETIA [Suspect]
     Indication: LOW DENSITY LIPOPROTEIN INCREASED
     Route: 048
     Dates: start: 20030902, end: 20040106
  9. SYNTHROID [Concomitant]
  10. PRINIVIL [Concomitant]
     Route: 048
  11. TOPROL-XL [Concomitant]
  12. MACRODANTIN [Concomitant]
  13. DITROPAN [Concomitant]

REACTIONS (3)
  - ANTINUCLEAR ANTIBODY POSITIVE [None]
  - HEPATIC FAILURE [None]
  - HEPATIC NECROSIS [None]
